FAERS Safety Report 4405435-9 (Version None)
Quarter: 2004Q3

REPORT INFORMATION
  Report Type: 
  Country: None (occurrence: None)
  Receive Date: 20040723
  Receipt Date: 20030822
  Transmission Date: 20050211
  Serious: No
  Sender: FDA-Public Use
  Company Number: US-GLAXOSMITHKLINE-A0423121A

PATIENT
  Age: 74 Year
  Sex: Male

DRUGS (6)
  1. AVANDIA [Suspect]
     Dosage: 8MG PER DAY
     Route: 048
  2. GLUCOTROL XL [Concomitant]
  3. FLOMAX [Concomitant]
  4. TOPROL-XL [Concomitant]
  5. AVAPRO [Concomitant]
  6. ASPIRIN [Concomitant]
     Route: 048

REACTIONS (1)
  - CONSTIPATION [None]
